FAERS Safety Report 4850779-X (Version None)
Quarter: 2005Q4

REPORT INFORMATION
  Report Type: 
  Country: None (occurrence: None)
  Receive Date: 20051212
  Receipt Date: 20051130
  Transmission Date: 20060501
  Serious: Yes (Hospitalization)
  Sender: FDA-Public Use
  Company Number: NZ-AVENTIS-200514762EU

PATIENT
  Age: 64 Year
  Sex: Male

DRUGS (2)
  1. CLEXANE [Suspect]
     Indication: PULMONARY EMBOLISM
  2. ASPIRIN [Concomitant]
     Indication: PULMONARY EMBOLISM

REACTIONS (7)
  - HYPOALBUMINAEMIA [None]
  - INFECTION [None]
  - PARALYSIS FLACCID [None]
  - PARAPLEGIA [None]
  - POST PROCEDURAL COMPLICATION [None]
  - PULMONARY OEDEMA [None]
  - SPINAL HAEMATOMA [None]
